FAERS Safety Report 7851788 (Version 3)
Quarter: 2012Q4

REPORT INFORMATION
  Report Type: 
  Country: US (occurrence: US)
  Receive Date: 20110311
  Receipt Date: 20120920
  Transmission Date: 20130627
  Serious: Yes (Other)
  Sender: FDA-Public Use
  Company Number: US-PFIZER INC-2011051532

PATIENT
  Age: 52 Year
  Sex: Female
  Weight: 55.33 kg

DRUGS (13)
  1. CHANTIX [Suspect]
     Indication: SMOKING CESSATION THERAPY
     Dosage: 0.5 mg, 1x/day
     Route: 048
     Dates: start: 20110203, end: 201102
  2. CHANTIX [Suspect]
     Dosage: 0.5 mg, UNK
     Route: 048
     Dates: start: 201102, end: 201102
  3. CHANTIX [Suspect]
     Dosage: UNK
     Route: 048
     Dates: start: 201102, end: 20110210
  4. VALIUM [Concomitant]
     Indication: ANXIETY
     Dosage: 10 mg, 1x/day
     Route: 048
  5. VALIUM [Concomitant]
     Indication: PANIC ATTACK
  6. HYDROCODONE [Concomitant]
     Dosage: 7.5 mg, 3x/day
     Route: 048
  7. METHOCARBAMOL [Concomitant]
     Indication: MUSCLE RELAXANT THERAPY
     Dosage: 750 mg, 2x/day
  8. TORSEMIDE [Concomitant]
     Indication: SWELLING
     Dosage: 10 mg, 1x/day
  9. SPIRONOLACTONE [Concomitant]
     Dosage: 50 mg, 1x/day
  10. FLUTICASONE [Concomitant]
     Indication: RHINORRHOEA
     Dosage: UNK
     Route: 045
  11. FLUTICASONE [Concomitant]
     Indication: SINUS DISORDER
  12. LANTUS [Concomitant]
     Indication: DIABETES MELLITUS
     Dosage: UNK
  13. MEDROL [Concomitant]
     Indication: VEIN DISORDER
     Dosage: UNK

REACTIONS (9)
  - Hallucination [Recovered/Resolved]
  - Blindness [Not Recovered/Not Resolved]
  - Amnesia [Not Recovered/Not Resolved]
  - Cataract [Unknown]
  - Conversion disorder [Recovered/Resolved]
  - Pharyngeal disorder [Unknown]
  - Abnormal dreams [Unknown]
  - Platelet count decreased [Unknown]
  - Malaise [Unknown]
